FAERS Safety Report 7250179-1 (Version None)
Quarter: 2011Q1

REPORT INFORMATION
  Report Type: 
  Country: None (occurrence: None)
  Receive Date: 20110128
  Receipt Date: 20100708
  Transmission Date: 20110831
  Serious: Yes (Hospitalization, Other)
  Sender: FDA-Public Use
  Company Number: US-BAYER-200930977NA

PATIENT
  Sex: Female
  Weight: 62.727 kg

DRUGS (7)
  1. YAZ [Suspect]
     Indication: PRODUCT USED FOR UNKNOWN INDICATION
     Route: 048
     Dates: start: 20040101, end: 20080101
  2. OCELLA [Suspect]
     Indication: CONTRACEPTION
     Dosage: UNK
     Route: 048
  3. ANTIBIOTICS [Concomitant]
  4. VITAMINS NOS [Concomitant]
  5. IBUPROFEN [Concomitant]
  6. YASMIN [Suspect]
     Indication: CONTRACEPTION
     Route: 048
     Dates: start: 20040301, end: 20080618
  7. PORTIA-28 [Concomitant]
     Dates: start: 20040101, end: 20040101

REACTIONS (5)
  - THORACIC OUTLET SYNDROME [None]
  - SKIN DISCOLOURATION [None]
  - OEDEMA PERIPHERAL [None]
  - PAGET-SCHROETTER SYNDROME [None]
  - PARAESTHESIA [None]
